FAERS Safety Report 11293977 (Version 2)
Quarter: 2015Q3

REPORT INFORMATION
  Report Type: Report from Study
  Country: US (occurrence: US)
  Receive Date: 20150722
  Receipt Date: 20150819
  Transmission Date: 20151125
  Serious: Yes (Hospitalization, Other)
  Sender: FDA-Public Use
  Company Number: GXBR2015US001702

PATIENT
  Age: 78 Year
  Sex: Female
  Weight: 112 kg

DRUGS (12)
  1. TORSEMIDE. [Concomitant]
     Active Substance: TORSEMIDE
     Indication: DIURETIC THERAPY
     Dosage: 100 MG, BID
     Route: 048
     Dates: start: 20150519
  2. BENADRYL [Concomitant]
     Active Substance: DIPHENHYDRAMINE HYDROCHLORIDE
     Indication: PRURITUS
     Dosage: 25 MG, PRN
     Route: 048
     Dates: start: 20150510
  3. MAG OXIDE [Concomitant]
     Active Substance: MAGNESIUM OXIDE
     Indication: MINERAL SUPPLEMENTATION
     Dosage: 500 MG, QD
     Route: 048
     Dates: start: 20141221
  4. SPIRONOLACTONE. [Concomitant]
     Active Substance: SPIRONOLACTONE
     Indication: DIURETIC THERAPY
     Dosage: 25 MG, QD
     Route: 048
     Dates: start: 20150510, end: 20150625
  5. BUMETANIDE. [Suspect]
     Active Substance: BUMETANIDE
     Indication: FLUID OVERLOAD
     Dosage: 3 MG/H, UNK
     Route: 042
     Dates: start: 201506
  6. TAFAMIDIS MEGLUMINE [Suspect]
     Active Substance: TAFAMIDIS MEGLUMINE
     Indication: CARDIAC AMYLOIDOSIS
     Dosage: UNK MG, QD
     Route: 048
     Dates: start: 20150126
  7. CALCITRIOL. [Concomitant]
     Active Substance: CALCITRIOL
     Indication: VITAMIN D
     Dosage: 1 DF, TIW
     Route: 048
     Dates: start: 20150526
  8. ALLOPURINOL. [Concomitant]
     Active Substance: ALLOPURINOL
     Indication: GOUT
     Dosage: 100 MG, QD
     Route: 048
     Dates: start: 20141009
  9. WARFARIN [Concomitant]
     Active Substance: WARFARIN
     Indication: ANTICOAGULANT THERAPY
     Dosage: 5 MG, QD
     Route: 048
     Dates: start: 20150426
  10. MILRINONE [Suspect]
     Active Substance: MILRINONE
     Indication: FLUID OVERLOAD
     Dosage: 0.375 UG, UNK
     Route: 065
     Dates: start: 201506
  11. METOLAZONE TABLETS USP [Suspect]
     Active Substance: METOLAZONE
     Indication: FLUID OVERLOAD
     Dosage: 10 MG, BID
     Route: 065
     Dates: start: 201506
  12. MOMETASONE [Concomitant]
     Active Substance: MOMETASONE
     Indication: PRURITUS
     Dosage: SPREAD THIN LAYER PRN
     Route: 061
     Dates: start: 20141024

REACTIONS (5)
  - Drug ineffective [Not Recovered/Not Resolved]
  - Cardiac failure [Not Recovered/Not Resolved]
  - Acute kidney injury [Not Recovered/Not Resolved]
  - Fluid overload [Not Recovered/Not Resolved]
  - Disease progression [Not Recovered/Not Resolved]

NARRATIVE: CASE EVENT DATE: 201506
